FAERS Safety Report 24834086 (Version 1)
Quarter: 2025Q1

REPORT INFORMATION
  Report Type: Spontaneous
  Country: US (occurrence: US)
  Receive Date: 20250113
  Receipt Date: 20250113
  Transmission Date: 20250409
  Serious: Yes (Other)
  Sender: BRISTOL-MYERS SQUIBB COMPANY
  Company Number: US-BRISTOL-MYERS SQUIBB COMPANY-2025-002269

PATIENT

DRUGS (4)
  1. COBENFY [Suspect]
     Active Substance: TROSPIUM CHLORIDE\XANOMELINE
     Indication: Product used for unknown indication
     Dosage: DOSE: 50/20MG
     Route: 048
  2. PERPHENAZINE [Suspect]
     Active Substance: PERPHENAZINE
     Indication: Schizophrenia
     Route: 048
  3. PERPHENAZINE [Suspect]
     Active Substance: PERPHENAZINE
     Indication: Autism spectrum disorder
  4. TRAZODONE [Concomitant]
     Active Substance: TRAZODONE HYDROCHLORIDE
     Indication: Product used for unknown indication

REACTIONS (7)
  - Salivary hypersecretion [Recovered/Resolved]
  - Chills [Recovered/Resolved]
  - Piloerection [Recovered/Resolved]
  - Hypertension [Recovered/Resolved]
  - Tachycardia [Recovered/Resolved]
  - Musculoskeletal stiffness [Recovered/Resolved]
  - Depressed level of consciousness [Recovered/Resolved]
